FAERS Safety Report 5369353-4 (Version None)
Quarter: 2007Q2

REPORT INFORMATION
  Report Type: 
  Country: None (occurrence: None)
  Receive Date: 20070625
  Receipt Date: 20070420
  Transmission Date: 20071010
  Serious: No
  Sender: FDA-Public Use
  Company Number: US-ASTRAZENECA-2007UW04774

PATIENT
  Age: 54 Year
  Sex: Male
  Weight: 84.1 kg

DRUGS (1)
  1. CRESTOR [Suspect]
     Route: 048
     Dates: start: 20060101, end: 20061011

REACTIONS (1)
  - AMNESIA [None]
